FAERS Safety Report 5186674-9 (Version None)
Quarter: 2006Q4

REPORT INFORMATION
  Report Type: 
  Country: None (occurrence: None)
  Receive Date: 20061220
  Receipt Date: 20061211
  Transmission Date: 20070319
  Serious: Yes (Hospitalization)
  Sender: FDA-Public Use
  Company Number: GB-MERCK-0612GBR00057

PATIENT
  Age: 14 Year
  Sex: Male

DRUGS (1)
  1. ARAMINE [Suspect]
     Route: 042

REACTIONS (2)
  - CARDIOVASCULAR DISORDER [None]
  - HEPATOCELLULAR DAMAGE [None]
